FAERS Safety Report 4359676-X (Version None)
Quarter: 2004Q2

REPORT INFORMATION
  Report Type: 
  Country: None (occurrence: None)
  Receive Date: 20040514
  Receipt Date: 20040514
  Transmission Date: 20050107
  Serious: Yes (Other)
  Sender: FDA-Public Use
  Company Number: None

PATIENT
  Age: 20 Year
  Sex: Female
  Weight: 77.1115 kg

DRUGS (1)
  1. DEPO-PROVERA [Suspect]
     Indication: CONTRACEPTION
     Dosage: 150 MG 3 MONTHS
     Dates: start: 20020101, end: 20031207

REACTIONS (11)
  - AGGRESSION [None]
  - ARTHRALGIA [None]
  - DEPRESSION [None]
  - HAEMORRHAGE [None]
  - HEADACHE [None]
  - HOT FLUSH [None]
  - LOSS OF LIBIDO [None]
  - MOOD ALTERED [None]
  - NAUSEA [None]
  - VISION BLURRED [None]
  - WEIGHT INCREASED [None]
